FAERS Safety Report 19253323 (Version 1)
Quarter: 2021Q2

REPORT INFORMATION
  Report Type: Spontaneous
  Country: US (occurrence: US)
  Receive Date: 20210513
  Receipt Date: 20210513
  Transmission Date: 20210717
  Serious: Yes (Death, Hospitalization, Other)
  Sender: FDA-Public Use
  Company Number: None

PATIENT
  Age: 60 Year
  Sex: Female
  Weight: 127.9 kg

DRUGS (1)
  1. LUSPATERCEPT. [Suspect]
     Active Substance: LUSPATERCEPT
     Indication: MYELODYSPLASTIC SYNDROME
     Dosage: ?          OTHER FREQUENCY:ONCE;?
     Route: 058
     Dates: start: 20210428, end: 20210428

REACTIONS (8)
  - Acute kidney injury [None]
  - Hepatic failure [None]
  - Blood electrolytes abnormal [None]
  - Respiratory failure [None]
  - Bone pain [None]
  - Nausea [None]
  - Dialysis [None]
  - Multiple organ dysfunction syndrome [None]

NARRATIVE: CASE EVENT DATE: 20210428
